FAERS Safety Report 17483010 (Version 1)
Quarter: 2020Q1

REPORT INFORMATION
  Report Type: Spontaneous
  Country: ES (occurrence: ES)
  Receive Date: 20200302
  Receipt Date: 20200302
  Transmission Date: 20200409
  Serious: Yes (Hospitalization)
  Sender: FDA-Public Use
  Company Number: ES-MYLANLABS-2020M1024009

PATIENT
  Age: 83 Year
  Sex: Male

DRUGS (3)
  1. EPINEPHRINE. [Suspect]
     Active Substance: EPINEPHRINE
     Indication: DUODENAL ULCER HAEMORRHAGE
     Dosage: 1: 20000; CONVENTIONAL ENDOSCOPIC THERAPY
     Route: 065
  2. LOSARTAN. [Concomitant]
     Active Substance: LOSARTAN
     Indication: HYPERTENSION
     Dosage: UNK
     Route: 065
  3. POLIDOCANOL. [Suspect]
     Active Substance: POLIDOCANOL
     Indication: DUODENAL ULCER HAEMORRHAGE
     Dosage: CONVENTIONAL ENDOSCOPIC THERAPY
     Route: 065

REACTIONS (1)
  - Drug ineffective [Unknown]
